FAERS Safety Report 14306415 (Version 2)
Quarter: 2017Q4

REPORT INFORMATION
  Report Type: Report from Study
  Country: IN (occurrence: IN)
  Receive Date: 20171220
  Receipt Date: 20171229
  Transmission Date: 20180321
  Serious: Yes (Other)
  Sender: FDA-Public Use
  Company Number: PHHY2017IN187538

PATIENT
  Sex: Male
  Weight: 62 kg

DRUGS (4)
  1. SPEXIB [Suspect]
     Active Substance: CERITINIB
     Dosage: 350 MG, QD
     Route: 048
  2. SPEXIB [Suspect]
     Active Substance: CERITINIB
     Dosage: 300 MG, QD
     Route: 048
  3. SPEXIB [Suspect]
     Active Substance: CERITINIB
     Indication: NON-SMALL CELL LUNG CANCER
     Dosage: 450 MG, QD
     Route: 048
  4. SPEXIB [Suspect]
     Active Substance: CERITINIB
     Dosage: 750 MG, (300MG AND 450 MG ALTERNATE DAYS)
     Route: 048
     Dates: start: 20171202, end: 20171212

REACTIONS (5)
  - Hemiplegia [Not Recovered/Not Resolved]
  - Diarrhoea [Not Recovered/Not Resolved]
  - Drug intolerance [Not Recovered/Not Resolved]
  - Dyspepsia [Unknown]
  - Gastritis [Not Recovered/Not Resolved]
